FAERS Safety Report 5033762-3 (Version None)
Quarter: 2006Q2

REPORT INFORMATION
  Report Type: 
  Country: None (occurrence: None)
  Receive Date: 20060620
  Receipt Date: 20060531
  Transmission Date: 20061013
  Serious: Yes (Hospitalization, Disabling)
  Sender: FDA-Public Use
  Company Number: CZ200605003671

PATIENT
  Age: 44 Year
  Sex: Male

DRUGS (4)
  1. ZYPREXA [Suspect]
     Indication: BIPOLAR DISORDER
     Dosage: 15 MG, DAILY 1/D), ORAL
     Route: 048
     Dates: start: 20050317
  2. LAMOTRIGINE [Concomitant]
  3. PROMETHAZINE (PROMETHAZINE) TABLET [Concomitant]
  4. PLEGOMAZIN (CHLORPROMAZINE HYDROCHLORIDE) TABLET [Concomitant]

REACTIONS (3)
  - ALCOHOLISM [None]
  - ASPIRATION [None]
  - LOSS OF CONSCIOUSNESS [None]
